FAERS Safety Report 19277409 (Version 2)
Quarter: 2021Q3

REPORT INFORMATION
  Report Type: Spontaneous
  Country: US (occurrence: US)
  Receive Date: 20210519
  Receipt Date: 20210825
  Transmission Date: 20211014
  Serious: Yes (Other)
  Sender: FDA-Public Use
  Company Number: US-JNJFOC-20210526726

PATIENT
  Age: 62 Year
  Sex: Male
  Weight: 68.1 kg

DRUGS (1)
  1. SIMPONI ARIA [Suspect]
     Active Substance: GOLIMUMAB
     Indication: PSORIATIC ARTHROPATHY
     Route: 042
     Dates: start: 202009

REACTIONS (4)
  - Blood glucose increased [Unknown]
  - Blood pressure increased [Unknown]
  - Hip arthroplasty [Unknown]
  - Pain [Unknown]

NARRATIVE: CASE EVENT DATE: 202104
